FAERS Safety Report 24677017 (Version 1)
Quarter: 2024Q4

REPORT INFORMATION
  Report Type: Spontaneous
  Country: US (occurrence: US)
  Receive Date: 20241128
  Receipt Date: 20241128
  Transmission Date: 20250115
  Serious: No
  Sender: STRIDES
  Company Number: US-STRIDES ARCOLAB LIMITED-2024SP013180

PATIENT

DRUGS (4)
  1. IMIPRAMINE HYDROCHLORIDE [Suspect]
     Active Substance: IMIPRAMINE HYDROCHLORIDE
     Indication: Enuresis
     Dosage: 10 MILLIGRAM (INITIAL DOSE)
     Route: 065
  2. IMIPRAMINE HYDROCHLORIDE [Suspect]
     Active Substance: IMIPRAMINE HYDROCHLORIDE
     Dosage: 150 MILLIGRAM (DOSE GRADUALLY INCREASED TO THE MAXIMUM DOSE OF 150MG)
     Route: 065
  3. DESMOPRESSIN [Suspect]
     Active Substance: DESMOPRESSIN
     Indication: Enuresis
     Dosage: 0.2 MILLIGRAM (INITIAL DOSE)
     Route: 065
  4. DESMOPRESSIN [Suspect]
     Active Substance: DESMOPRESSIN
     Dosage: 0.8 MILLIGRAM (DOSE GRADUALLY INCREASED TO?0.8MG)
     Route: 065

REACTIONS (1)
  - Treatment noncompliance [Unknown]
